FAERS Safety Report 4589537-2 (Version None)
Quarter: 2005Q1

REPORT INFORMATION
  Report Type: 
  Country: None (occurrence: None)
  Receive Date: 20050216
  Receipt Date: 20050202
  Transmission Date: 20050727
  Serious: Yes (Death, Other)
  Sender: FDA-Public Use
  Company Number: 2005025098

PATIENT
  Age: 15 Year
  Sex: Male
  Weight: 65 kg

DRUGS (4)
  1. CEFOPERAZONE SODIUM [Suspect]
     Indication: ILL-DEFINED DISORDER
     Dosage: 2 GRAM 1 D)
     Dates: start: 20011211, end: 20011213
  2. ASPOXICILLIN           (ASPOXICILLIN) [Suspect]
     Indication: ILL-DEFINED DISORDER
     Dosage: 2 GRAM (UNK, 1 D), UNKNOWN
     Dates: start: 20011208, end: 20011217
  3. MINOCYCLINE HYDROCHLORIDE [Suspect]
     Indication: ILL-DEFINED DISORDER
     Dosage: 200 MG(UNK, 1 D), UNKNOWN
     Dates: start: 20011214, end: 20011217
  4. LOXOPROFEN SODIUM           (LOXOPROFEN SODIUM) [Suspect]
     Indication: ILL-DEFINED DISORDER
     Dosage: 80 MG (UNK, 1 D), UNKNOWN
     Dates: start: 20011208, end: 20011225

REACTIONS (21)
  - ABDOMINAL DISTENSION [None]
  - CARDIAC DISORDER [None]
  - COAGULOPATHY [None]
  - COMA HEPATIC [None]
  - ENCEPHALOPATHY [None]
  - HAEMODIALYSIS [None]
  - HEART RATE INCREASED [None]
  - HEPATITIS FULMINANT [None]
  - HISTIOCYTOSIS HAEMATOPHAGIC [None]
  - HYPERCOAGULATION [None]
  - HYPOCOAGULABLE STATE [None]
  - INTRA-ABDOMINAL HAEMORRHAGE [None]
  - LIVER PALPABLE SUBCOSTAL [None]
  - LIVER TRANSPLANT [None]
  - PANCYTOPENIA [None]
  - PERITONITIS [None]
  - PYREXIA [None]
  - RASH ERYTHEMATOUS [None]
  - RASH GENERALISED [None]
  - RASH PAPULAR [None]
  - RESPIRATORY RATE INCREASED [None]
